FAERS Safety Report 9551100 (Version 1)
Quarter: 2013Q3

REPORT INFORMATION
  Report Type: Spontaneous
  Country: US (occurrence: US)
  Receive Date: 20130925
  Receipt Date: 20130925
  Transmission Date: 20140515
  Serious: Yes (Hospitalization)
  Sender: FDA-Public Use
  Company Number: US-BIOGENIDEC-2013BI092053

PATIENT
  Sex: Female

DRUGS (10)
  1. AVONEX [Suspect]
     Indication: MULTIPLE SCLEROSIS
     Route: 030
     Dates: start: 19970601
  2. AVONEX [Suspect]
     Indication: MULTIPLE SCLEROSIS
     Route: 030
     Dates: start: 19980529, end: 20061129
  3. AVONEX [Suspect]
     Indication: MULTIPLE SCLEROSIS
     Route: 030
     Dates: start: 20070308, end: 20070829
  4. AVONEX [Suspect]
     Indication: MULTIPLE SCLEROSIS
     Route: 030
     Dates: start: 20100609
  5. COPAXONE [Concomitant]
  6. BETASERON [Concomitant]
  7. TYSABRI [Concomitant]
     Indication: MULTIPLE SCLEROSIS
     Route: 042
     Dates: start: 20090206, end: 20090406
  8. PREDNISONE [Concomitant]
     Indication: PREMEDICATION
  9. TYLENOL [Concomitant]
     Indication: PREMEDICATION
  10. ADVIL [Concomitant]
     Indication: PREMEDICATION

REACTIONS (4)
  - Hydrocephalus [Not Recovered/Not Resolved]
  - Shunt malfunction [Unknown]
  - Amnesia [Not Recovered/Not Resolved]
  - Influenza like illness [Recovered/Resolved]
